FAERS Safety Report 7658671-2 (Version None)
Quarter: 2011Q3

REPORT INFORMATION
  Report Type: 
  Country: None (occurrence: None)
  Receive Date: 20110805
  Receipt Date: 20110803
  Transmission Date: 20111222
  Serious: Yes (Other)
  Sender: FDA-Public Use
  Company Number: US-PFIZER INC-2011177824

PATIENT
  Sex: Male
  Weight: 232 kg

DRUGS (1)
  1. CELEBREX [Suspect]
     Indication: BACK PAIN
     Dosage: UNK
     Dates: start: 20110712, end: 20110802

REACTIONS (5)
  - HYPERTENSION [None]
  - SWELLING FACE [None]
  - BURNING SENSATION [None]
  - HYPERSENSITIVITY [None]
  - BODY MASS INDEX INCREASED [None]
